FAERS Safety Report 11911051 (Version 1)
Quarter: 2016Q1

REPORT INFORMATION
  Report Type: Spontaneous
  Country: US (occurrence: None)
  Receive Date: 20160111
  Receipt Date: 20160111
  Transmission Date: 20160526
  Serious: No
  Sender: FDA-Public Use
  Company Number: None

PATIENT
  Age: 61 Year
  Sex: Female
  Weight: 78.02 kg

DRUGS (4)
  1. FLAXSEED [Concomitant]
     Active Substance: FLAX SEED
  2. FOSAMAX [Suspect]
     Active Substance: ALENDRONATE SODIUM
     Indication: OSTEOPOROSIS
     Dosage: 1 PILL
     Route: 048
     Dates: start: 20151221, end: 20151228
  3. FISH OIL [Concomitant]
     Active Substance: FISH OIL
  4. REQUIP [Concomitant]
     Active Substance: ROPINIROLE HYDROCHLORIDE

REACTIONS (7)
  - Pain in extremity [None]
  - Joint swelling [None]
  - Myalgia [None]
  - Pain [None]
  - Dyspnoea [None]
  - Arthralgia [None]
  - Activities of daily living impaired [None]

NARRATIVE: CASE EVENT DATE: 20151228
